FAERS Safety Report 17184685 (Version 7)
Quarter: 2024Q2

REPORT INFORMATION
  Report Type: Other
  Country: DE (occurrence: None)
  Receive Date: 20191220
  Receipt Date: 20240511
  Transmission Date: 20240715
  Serious: Yes (Hospitalization)
  Sender: FDA-Public Use
  Company Number: DE-ROCHE-2496984

PATIENT
  Age: 57 Year
  Sex: Male
  Weight: 75 kg

DRUGS (24)
  1. OCREVUS [Suspect]
     Active Substance: OCRELIZUMAB
     Indication: Relapsing multiple sclerosis
     Route: 042
     Dates: start: 20180425, end: 20180508
  2. OCREVUS [Suspect]
     Active Substance: OCRELIZUMAB
     Route: 042
     Dates: start: 20181015
  3. CHOLECALCIFEROL [Concomitant]
     Active Substance: CHOLECALCIFEROL
     Indication: Vitamin D deficiency
     Route: 048
     Dates: start: 20130226
  4. CYMBALTA [Concomitant]
     Active Substance: DULOXETINE HYDROCHLORIDE
     Indication: Neuralgia
     Route: 048
     Dates: start: 201205
  5. MOVICOL [Concomitant]
     Active Substance: POLYETHYLENE GLYCOL 3350\POTASSIUM CHLORIDE\SODIUM BICARBONATE\SODIUM CHLORIDE
     Route: 048
     Dates: start: 202312, end: 202312
  6. PREDNISOLONE [Concomitant]
     Active Substance: PREDNISOLONE
     Indication: Prophylaxis
     Route: 042
     Dates: start: 20190425, end: 20190425
  7. PREDNISOLONE [Concomitant]
     Active Substance: PREDNISOLONE
     Route: 042
     Dates: start: 20181015, end: 20181015
  8. PREDNISOLONE [Concomitant]
     Active Substance: PREDNISOLONE
     Route: 042
     Dates: start: 20180508, end: 20180508
  9. LYRICA [Concomitant]
     Active Substance: PREGABALIN
     Indication: Neuralgia
     Route: 048
  10. RANITIDINE HYDROCHLORIDE [Concomitant]
     Active Substance: RANITIDINE HYDROCHLORIDE
     Indication: Prophylaxis
     Route: 048
     Dates: start: 20180507, end: 20180509
  11. RANITIDINE HYDROCHLORIDE [Concomitant]
     Active Substance: RANITIDINE HYDROCHLORIDE
     Route: 048
     Dates: start: 20180424, end: 20180426
  12. RANITIDINE HYDROCHLORIDE [Concomitant]
     Active Substance: RANITIDINE HYDROCHLORIDE
     Route: 048
     Dates: start: 20190424, end: 20190426
  13. RANITIDINE HYDROCHLORIDE [Concomitant]
     Active Substance: RANITIDINE HYDROCHLORIDE
     Route: 048
     Dates: start: 20181014, end: 20181016
  14. EBASTINE [Concomitant]
     Active Substance: EBASTINE
     Indication: Prophylaxis
     Route: 048
     Dates: start: 20190424, end: 20190426
  15. EBASTINE [Concomitant]
     Active Substance: EBASTINE
     Route: 048
     Dates: start: 20180424, end: 20180426
  16. EBASTINE [Concomitant]
     Active Substance: EBASTINE
     Route: 048
     Dates: start: 20180507, end: 20180509
  17. EBASTINE [Concomitant]
     Active Substance: EBASTINE
     Route: 048
     Dates: start: 20181014, end: 20181016
  18. NABIXIMOLS [Concomitant]
     Active Substance: NABIXIMOLS
     Indication: Muscle spasticity
     Route: 048
     Dates: start: 201910
  19. BETHANECHOL CHLORIDE [Concomitant]
     Active Substance: BETHANECHOL CHLORIDE
     Indication: Neuralgia
     Route: 048
  20. BACLOFEN [Concomitant]
     Active Substance: BACLOFEN
     Indication: Muscle spasticity
     Route: 048
  21. BACLOFEN [Concomitant]
     Active Substance: BACLOFEN
     Route: 048
  22. PFIZER-BIONTECH COVID-19 VACCINE [Concomitant]
     Active Substance: TOZINAMERAN
     Route: 030
     Dates: start: 20210622, end: 20210713
  23. PREDNISOLONE [Concomitant]
     Active Substance: PREDNISOLONE
     Indication: Prophylaxis
     Route: 042
     Dates: start: 20180425, end: 20180425
  24. ATORVASTATIN [Concomitant]
     Active Substance: ATORVASTATIN
     Indication: Arteriosclerosis
     Route: 048
     Dates: start: 201601

REACTIONS (5)
  - Anaemia [Not Recovered/Not Resolved]
  - Sinusitis [Recovered/Resolved]
  - Hyponatraemia [Unknown]
  - Normochromic normocytic anaemia [Recovered/Resolved]
  - Respiratory tract infection [Not Recovered/Not Resolved]

NARRATIVE: CASE EVENT DATE: 20190716
